FAERS Safety Report 9191494 (Version 1)
Quarter: 2013Q1

REPORT INFORMATION
  Report Type: Spontaneous
  Country: US (occurrence: US)
  Receive Date: 20130326
  Receipt Date: 20130326
  Transmission Date: 20140127
  Serious: Yes (Other)
  Sender: FDA-Public Use
  Company Number: US-NICOBRDEVP-2013-04763

PATIENT
  Age: 61 Year
  Sex: Male

DRUGS (5)
  1. NICARDIPINE [Suspect]
     Indication: BLOOD PRESSURE MANAGEMENT
     Dosage: UNK UNK, UNKNOWN
     Route: 041
  2. MANNITOL [Concomitant]
     Indication: BRAIN OEDEMA
     Route: 065
  3. HYPERTONIC SALINE SOLUTION [Concomitant]
     Indication: BRAIN OEDEMA
     Route: 065
  4. METOPROLOL [Concomitant]
     Indication: PRODUCT USED FOR UNKNOWN INDICATION
     Route: 065
  5. HEPARIN [Concomitant]
     Indication: THROMBOSIS PROPHYLAXIS
     Route: 065

REACTIONS (1)
  - Drug-induced liver injury [Recovered/Resolved]
